FAERS Safety Report 17474731 (Version 3)
Quarter: 2022Q1

REPORT INFORMATION
  Report Type: Report from Study
  Country: CA (occurrence: CA)
  Receive Date: 20200228
  Receipt Date: 20220302
  Transmission Date: 20220423
  Serious: Yes (Other)
  Sender: FDA-Public Use
  Company Number: CA-JNJFOC-20190719755

PATIENT
  Age: 25 Year
  Sex: Male
  Weight: 80 kg

DRUGS (3)
  1. STELARA [Suspect]
     Active Substance: USTEKINUMAB
     Indication: Psoriasis
     Dosage: STRENGTH = 45 MG
     Route: 058
     Dates: start: 20190711
  2. STELARA [Suspect]
     Active Substance: USTEKINUMAB
     Dosage: STRENGTH = 45 MG
     Route: 058
     Dates: start: 20190711
  3. STELARA [Suspect]
     Active Substance: USTEKINUMAB
     Route: 058
     Dates: start: 20210325

REACTIONS (3)
  - Lower respiratory tract infection [Unknown]
  - Off label use [Unknown]
  - Product use issue [Unknown]

NARRATIVE: CASE EVENT DATE: 20190711
